FAERS Safety Report 8319985-6 (Version None)
Quarter: 2012Q2

REPORT INFORMATION
  Report Type: 
  Country: None (occurrence: None)
  Receive Date: 20120427
  Receipt Date: 20120417
  Transmission Date: 20120825
  Serious: Yes (Hospitalization)
  Sender: FDA-Public Use
  Company Number: NL-MEDIMMUNE-MEDI-0015312

PATIENT
  Sex: Female
  Weight: 7.5 kg

DRUGS (2)
  1. SYNAGIS [Suspect]
     Indication: HEART DISEASE CONGENITAL
     Route: 030
     Dates: start: 20110910, end: 20120209
  2. SYNAGIS [Suspect]
     Route: 030
     Dates: start: 20120320

REACTIONS (2)
  - DYSPNOEA [None]
  - CARBON DIOXIDE INCREASED [None]
